FAERS Safety Report 7532457-1 (Version None)
Quarter: 2011Q2

REPORT INFORMATION
  Report Type: 
  Country: None (occurrence: None)
  Receive Date: 20110608
  Receipt Date: 20110602
  Transmission Date: 20111010
  Serious: Yes (Hospitalization)
  Sender: FDA-Public Use
  Company Number: US-GILEAD-2011-0040101

PATIENT
  Age: 59 Year

DRUGS (1)
  1. LETAIRIS [Suspect]
     Indication: PRODUCT USED FOR UNKNOWN INDICATION
     Route: 048
     Dates: start: 20100812

REACTIONS (3)
  - CHEST PAIN [None]
  - NON-CARDIAC CHEST PAIN [None]
  - CHEST DISCOMFORT [None]
